FAERS Safety Report 10506228 (Version 3)
Quarter: 2014Q4

REPORT INFORMATION
  Report Type: Report from Study
  Country: CA (occurrence: CA)
  Receive Date: 20141009
  Receipt Date: 20141020
  Transmission Date: 20150528
  Serious: Yes (Hospitalization, Other)
  Sender: FDA-Public Use
  Company Number: CA-AMGEN-CANSP2013048649

PATIENT
  Age: 71 Year
  Sex: Female

DRUGS (2)
  1. ENBREL [Suspect]
     Active Substance: ETANERCEPT
     Indication: RHEUMATOID ARTHRITIS
     Dosage: 50 MG, QWK
     Route: 058
     Dates: start: 20130119, end: 20140504
  2. PREDNISONE. [Suspect]
     Active Substance: PREDNISONE
     Indication: RHEUMATOID ARTHRITIS
     Dosage: 5 MG, (DAILY)
     Route: 048
     Dates: start: 20020715

REACTIONS (7)
  - Ulcer [Recovering/Resolving]
  - Infection [Recovered/Resolved]
  - Sepsis [Recovering/Resolving]
  - Pain in extremity [Not Recovered/Not Resolved]
  - Impaired healing [Recovered/Resolved]
  - Fatigue [Recovering/Resolving]
  - Anaemia [Recovering/Resolving]

NARRATIVE: CASE EVENT DATE: 20130705
